FAERS Safety Report 5528487-1 (Version None)
Quarter: 2007Q4

REPORT INFORMATION
  Report Type: 
  Country: None (occurrence: None)
  Receive Date: 20071128
  Receipt Date: 20071122
  Transmission Date: 20080405
  Serious: Yes (Hospitalization)
  Sender: FDA-Public Use
  Company Number: IT-MERCK-0711ITA00013

PATIENT
  Age: 70 Year
  Sex: Female

DRUGS (4)
  1. FOSAMAX [Suspect]
     Indication: OSTEOPOROSIS
     Route: 048
     Dates: start: 20070101
  2. ALLOPURINOL [Suspect]
     Indication: HYPERURICAEMIA
     Route: 048
     Dates: start: 20070501, end: 20070817
  3. PANTOPRAZOLE [Concomitant]
     Route: 048
     Dates: start: 20070101, end: 20070817
  4. FOLINIC ACID [Concomitant]
     Route: 048
     Dates: start: 20070101, end: 20070817

REACTIONS (1)
  - TOXIC SKIN ERUPTION [None]
